FAERS Safety Report 10641225 (Version 1)
Quarter: 2014Q4

REPORT INFORMATION
  Report Type: Spontaneous
  Country: ES (occurrence: None)
  Receive Date: 20141208
  Receipt Date: 20141208
  Transmission Date: 20150529
  Serious: Yes (Other)
  Sender: FDA-Public Use
  Company Number: 2014ES0522

PATIENT
  Sex: Female

DRUGS (1)
  1. ANAKINRA (ANAKINRA) [Suspect]
     Active Substance: ANAKINRA
     Indication: JUVENILE IDIOPATHIC ARTHRITIS

REACTIONS (3)
  - Arthritis bacterial [None]
  - Histiocytosis haematophagic [None]
  - Hepatic function abnormal [None]
